FAERS Safety Report 7006926-7 (Version None)
Quarter: 2010Q3

REPORT INFORMATION
  Report Type: 
  Country: None (occurrence: None)
  Receive Date: 20100922
  Receipt Date: 20100917
  Transmission Date: 20110219
  Serious: Yes (Other)
  Sender: FDA-Public Use
  Company Number: BR-BAYER-201019059LA

PATIENT
  Age: 0 Hour
  Sex: Male
  Weight: 2.125 kg

DRUGS (1)
  1. YAZ [Suspect]
     Indication: ORAL CONTRACEPTION
     Route: 064

REACTIONS (2)
  - PREMATURE BABY [None]
  - SMALL FOR DATES BABY [None]
